FAERS Safety Report 21327407 (Version 1)
Quarter: 2022Q3

REPORT INFORMATION
  Report Type: Spontaneous
  Country: GB (occurrence: GB)
  Receive Date: 20220913
  Receipt Date: 20220913
  Transmission Date: 20221027
  Serious: No
  Sender: FDA-Public Use
  Company Number: None

PATIENT
  Age: 46 Year
  Sex: Female
  Weight: 89.1 kg

DRUGS (9)
  1. TOLVAPTAN [Suspect]
     Active Substance: TOLVAPTAN
     Indication: Congenital cystic kidney disease
     Dosage: 90 MILLIGRAM, UNK (TABLET, UNCOATED)
     Route: 048
     Dates: start: 20180403
  2. TOLVAPTAN [Suspect]
     Active Substance: TOLVAPTAN
     Dosage: 60 MILLIGRAM, UNK (TABLET, UNCOATED)
     Route: 048
     Dates: start: 20180306
  3. TOLVAPTAN [Suspect]
     Active Substance: TOLVAPTAN
     Dosage: 15 MILLIGRAM, UNK (TABLET, UNCOATED)
     Route: 048
     Dates: start: 20180102
  4. TOLVAPTAN [Suspect]
     Active Substance: TOLVAPTAN
     Dosage: 30 MILLIGRAM,  UNK (TABLET, UNCOATED)
     Route: 048
     Dates: start: 20180403
  5. TOLVAPTAN [Suspect]
     Active Substance: TOLVAPTAN
     Dosage: 30 MILLIGRAM,  UNK (TABLET, UNCOATED)
     Route: 048
     Dates: start: 20180306
  6. TOLVAPTAN [Suspect]
     Active Substance: TOLVAPTAN
     Dosage: 45 MILLIGRAM, UNK (TABLET, UNCOATED)
     Route: 048
     Dates: start: 20180102
  7. MIRENA [Concomitant]
     Active Substance: LEVONORGESTREL
     Indication: Prophylaxis
     Dosage: UNK, 20 OTHER CONTINUOUS
     Route: 065
     Dates: start: 20160224
  8. MIRENA [Concomitant]
     Active Substance: LEVONORGESTREL
     Indication: Contraception
     Dosage: UNK
     Route: 065
  9. RAMIPRIL [Concomitant]
     Active Substance: RAMIPRIL
     Indication: Product used for unknown indication
     Dosage: 5 MILLIGRAM, QD
     Route: 048
     Dates: start: 20130523

REACTIONS (2)
  - Hepatic enzyme increased [Recovered/Resolved]
  - Nocturia [Recovered/Resolved]

NARRATIVE: CASE EVENT DATE: 20180206
